FAERS Safety Report 7902142-2 (Version None)
Quarter: 2011Q4

REPORT INFORMATION
  Report Type: 
  Country: None (occurrence: None)
  Receive Date: 20111108
  Receipt Date: 20111026
  Transmission Date: 20120403
  Serious: No
  Sender: FDA-Public Use
  Company Number: US-ASTRAZENECA-2011SE47782

PATIENT
  Age: 39 Year
  Sex: Female
  Weight: 66.2 kg

DRUGS (2)
  1. SYMBICORT [Suspect]
     Route: 055
     Dates: start: 20080101
  2. HORMONE REPLACEMENT THERAPY [Concomitant]

REACTIONS (6)
  - BIPOLAR DISORDER [None]
  - DEPRESSION [None]
  - DISABILITY [None]
  - AGORAPHOBIA [None]
  - MENOPAUSE [None]
  - ANXIETY [None]
